FAERS Safety Report 14296552 (Version 1)
Quarter: 2017Q4

REPORT INFORMATION
  Report Type: Spontaneous
  Country: US (occurrence: US)
  Receive Date: 20171215
  Receipt Date: 20171215
  Transmission Date: 20180321
  Serious: No
  Sender: FDA-Public Use
  Company Number: None

PATIENT
  Sex: Female

DRUGS (3)
  1. COSENTYX [Suspect]
     Active Substance: SECUKINUMAB
     Route: 058
     Dates: start: 201710
  2. FORTEO [Suspect]
     Active Substance: TERIPARATIDE
     Indication: ANKYLOSING SPONDYLITIS
     Route: 058
     Dates: start: 201610
  3. FORTEO [Suspect]
     Active Substance: TERIPARATIDE
     Indication: OSTEOPOROSIS
     Route: 058
     Dates: start: 201610

REACTIONS (1)
  - Abdominal pain upper [None]
